FAERS Safety Report 9700612 (Version 4)
Quarter: 2014Q2

REPORT INFORMATION
  Report Type: Spontaneous
  Country: US (occurrence: US)
  Receive Date: 20131121
  Receipt Date: 20140528
  Transmission Date: 20141212
  Serious: No
  Sender: FDA-Public Use
  Company Number: US-PFIZER INC-2013331430

PATIENT
  Age: 67 Year
  Sex: Female
  Weight: 79.37 kg

DRUGS (2)
  1. CELEBREX [Suspect]
     Indication: ARTHRITIS
     Dosage: 200 MG, UNK
  2. HYDROCHLOROTHIAZIDE/LOSARTAN [Concomitant]
     Indication: HYPERTENSION
     Dosage: (LOSARTAN 100 MG/HYDROCHLOROTHIAZIDE 25 MG), DAILY

REACTIONS (5)
  - Intentional product misuse [Unknown]
  - Gait disturbance [Unknown]
  - Arthralgia [Unknown]
  - Musculoskeletal pain [Unknown]
  - Drug ineffective [Unknown]
